FAERS Safety Report 23610600 (Version 1)
Quarter: 2024Q1

REPORT INFORMATION
  Report Type: Spontaneous
  Country: US (occurrence: None)
  Receive Date: 20240307
  Receipt Date: 20240307
  Transmission Date: 20240409
  Serious: Yes (Hospitalization)
  Sender: FDA-Public Use
  Company Number: None

PATIENT
  Sex: Male

DRUGS (6)
  1. NUCALA [Suspect]
     Active Substance: MEPOLIZUMAB
     Indication: Asthma
     Route: 058
     Dates: start: 20231201
  2. ALBTUEROL AER HFA [Concomitant]
  3. FINASTERIDE TAB [Concomitant]
  4. IPRATROPIUM/SOL ALBUTER [Concomitant]
  5. TRELEGY AER [Concomitant]
  6. ZAFIRLUKAST TAB [Concomitant]

REACTIONS (2)
  - Pneumonia [None]
  - Asthma [None]
